FAERS Safety Report 23664977 (Version 3)
Quarter: 2024Q2

REPORT INFORMATION
  Report Type: Spontaneous
  Country: NL (occurrence: NL)
  Receive Date: 20240322
  Receipt Date: 20240415
  Transmission Date: 20240716
  Serious: Yes (Hospitalization, Other)
  Sender: FDA-Public Use
  Company Number: NL-002147023-NVSC2024NL048199

PATIENT
  Age: 1 Year
  Sex: Female
  Weight: 10.6 kg

DRUGS (17)
  1. PREDNISONE [Suspect]
     Active Substance: PREDNISONE
     Indication: Langerhans^ cell histiocytosis
     Dosage: UNK (LCH-IV,  STRATUM I, GR. 1, MAINTENANCE)
     Route: 065
  2. MERCAPTOPURINE [Suspect]
     Active Substance: MERCAPTOPURINE
     Indication: Langerhans^ cell histiocytosis
     Dosage: UNK (LCH-IV, STRATUM I, GR. 1, MAINTENANCE)
     Route: 065
  3. DABRAFENIB [Suspect]
     Active Substance: DABRAFENIB
     Indication: Langerhans^ cell histiocytosis
     Dosage: 40 MILLIGRAM, QD (20 MG, BID)
     Route: 048
  4. DABRAFENIB [Suspect]
     Active Substance: DABRAFENIB
     Indication: BRAF gene mutation
     Dosage: 60 MILLIGRAM, QD (30 MG, BID)
     Route: 048
     Dates: start: 20201120, end: 20201208
  5. DABRAFENIB [Suspect]
     Active Substance: DABRAFENIB
     Dosage: 60 MILLIGRAM, QD (30 MG, BID)
     Route: 048
     Dates: start: 20201209
  6. VINBLASTINE [Suspect]
     Active Substance: VINBLASTINE
     Indication: Langerhans^ cell histiocytosis
     Dosage: UNK (LCH-IV,  STRATUM I, GR. 1, MAINTENANCE)
     Route: 065
  7. TRAMETINIB [Suspect]
     Active Substance: TRAMETINIB
     Indication: BRAF gene mutation
     Dosage: 0.38 MILLIGRAM, QD
     Route: 048
     Dates: start: 20201120, end: 20201208
  8. TRAMETINIB [Suspect]
     Active Substance: TRAMETINIB
     Indication: Langerhans^ cell histiocytosis
  9. POTASSIUM CHLORIDE [Concomitant]
     Active Substance: POTASSIUM CHLORIDE
     Indication: Hypokalaemia
     Dosage: 15 MILLIMOLE, QD (5 MMOL, TID)
     Route: 065
     Dates: start: 20201123
  10. POTASSIUM CHLORIDE [Concomitant]
     Active Substance: POTASSIUM CHLORIDE
     Dosage: 15 MILLIMOLE, QD (5 MMOL, TID)
     Route: 065
     Dates: start: 20201208
  11. DEXAMETHASONE\FRAMYCETIN SULFATE\GRAMICIDIN [Concomitant]
     Active Substance: DEXAMETHASONE\FRAMYCETIN SULFATE\GRAMICIDIN
     Indication: Ear infection
     Dosage: 9 DROP, QD (3 DRP, TID)
     Route: 065
     Dates: start: 20201103
  12. DEXAMETHASONE\FRAMYCETIN SULFATE\GRAMICIDIN [Concomitant]
     Active Substance: DEXAMETHASONE\FRAMYCETIN SULFATE\GRAMICIDIN
     Dosage: 9 DROP, QD (3 DRP, TID)
     Route: 065
     Dates: start: 20201208
  13. HYDROCORTISONE [Concomitant]
     Active Substance: HYDROCORTISONE
     Indication: Product used for unknown indication
     Dosage: UNK
     Route: 065
  14. ISAVUCONAZOLE [Concomitant]
     Active Substance: ISAVUCONAZOLE
     Indication: Bronchopulmonary aspergillosis
     Dosage: 100 MILLIGRAM, QD
     Route: 065
     Dates: start: 20201121
  15. ISAVUCONAZOLE [Concomitant]
     Active Substance: ISAVUCONAZOLE
     Dosage: 100 MILLIGRAM, QD
     Route: 065
     Dates: start: 20201208
  16. AMBISOME [Concomitant]
     Active Substance: AMPHOTERICIN B
     Indication: Bronchopulmonary aspergillosis
     Dosage: 33 MILLIGRAM, QD
     Route: 065
     Dates: start: 20201102
  17. AMBISOME [Concomitant]
     Active Substance: AMPHOTERICIN B
     Dosage: 33 MILLIGRAM, QD
     Route: 065
     Dates: start: 20201208

REACTIONS (4)
  - Melaena [Recovered/Resolved]
  - Gastrointestinal haemorrhage [Unknown]
  - Haemoglobin decreased [Unknown]
  - Product use issue [Unknown]

NARRATIVE: CASE EVENT DATE: 20201208
